FAERS Safety Report 15787957 (Version 1)
Quarter: 2019Q1

REPORT INFORMATION
  Report Type: Other
  Country: GB (occurrence: GB)
  Receive Date: 20190104
  Receipt Date: 20190104
  Transmission Date: 20190417
  Serious: Yes (Hospitalization)
  Sender: FDA-Public Use
  Company Number: GB-DENTSPLY-2018SCDP000550

PATIENT
  Age: 56 Year
  Sex: Female
  Weight: 60.7 kg

DRUGS (1)
  1. XYLOCAINE [Suspect]
     Active Substance: LIDOCAINE HYDROCHLORIDE
     Indication: OESOPHAGOGASTRODUODENOSCOPY
     Dosage: THROAT SPRAY
     Route: 061
     Dates: start: 20181016, end: 20181016

REACTIONS (3)
  - Muscle twitching [Recovered/Resolved]
  - Generalised tonic-clonic seizure [Recovered/Resolved]
  - Dyskinesia [Recovered/Resolved]

NARRATIVE: CASE EVENT DATE: 20181016
